FAERS Safety Report 21645649 (Version 2)
Quarter: 2023Q1

REPORT INFORMATION
  Report Type: Spontaneous
  Country: US (occurrence: US)
  Receive Date: 20221126
  Receipt Date: 20230113
  Transmission Date: 20230418
  Serious: Yes (Hospitalization)
  Sender: FDA-Public Use
  Company Number: US-UNITED THERAPEUTICS-UNT-2022-027498

PATIENT
  Age: 45 Year
  Sex: Female
  Weight: 126.08 kg

DRUGS (9)
  1. REMODULIN [Suspect]
     Active Substance: TREPROSTINIL
     Indication: Pulmonary arterial hypertension
     Dosage: UNK, CONTINUING
     Route: 058
     Dates: start: 20221107
  2. REMODULIN [Suspect]
     Active Substance: TREPROSTINIL
     Dosage: 0.015 ?G/KG (PHARMACY PRE-FILLED WITH 2.4ML PER CASSETTE AT PUMP RATE OF 26 MCL/HOUR), CONTINUING
     Route: 058
     Dates: start: 202211
  3. REMODULIN [Suspect]
     Active Substance: TREPROSTINIL
     Dosage: UNK UNK, CONTINUING
     Route: 058
     Dates: start: 202211
  4. REMODULIN [Suspect]
     Active Substance: TREPROSTINIL
     Dosage: 0.017 ?G/KG (PHARMACY PRE-FILLED WITH 3 ML PER CASSETTE AT PUMP RATE OF 29 MCL/HOUR), CONTINUING
     Route: 058
  5. VELETRI [Concomitant]
     Active Substance: EPOPROSTENOL
     Indication: Pulmonary arterial hypertension
     Dosage: 12960 NG/KG (9 NG/KG,1 IN 1 MIN)
     Route: 041
     Dates: end: 2022
  6. VELETRI [Concomitant]
     Active Substance: EPOPROSTENOL
     Dosage: UNK, CONTINUING (10 NG/KG,1 IN 1 MIN)
     Route: 041
  7. AMBRISENTAN [Concomitant]
     Active Substance: AMBRISENTAN
     Indication: Product used for unknown indication
     Dosage: UNK
     Route: 065
  8. REVATIO [Concomitant]
     Active Substance: SILDENAFIL CITRATE
     Indication: Product used for unknown indication
     Dosage: UNK
     Route: 065
  9. ELIQUIS [Concomitant]
     Active Substance: APIXABAN
     Indication: Product used for unknown indication
     Dosage: UNK
     Route: 065

REACTIONS (12)
  - Oedema [Unknown]
  - Nausea [Unknown]
  - Infusion site pain [Unknown]
  - Epistaxis [Unknown]
  - Abdominal pain upper [Unknown]
  - Fatigue [Unknown]
  - Dyspnoea exertional [Unknown]
  - Oedema peripheral [Unknown]
  - Infusion site erythema [Unknown]
  - Diarrhoea [Unknown]
  - Dyspnoea [Recovering/Resolving]
  - Anxiety [Unknown]

NARRATIVE: CASE EVENT DATE: 20221001
